FAERS Safety Report 5827246-X (Version None)
Quarter: 2008Q3

REPORT INFORMATION
  Report Type: 
  Country: None (occurrence: None)
  Receive Date: 20080730
  Receipt Date: 20070809
  Transmission Date: 20090109
  Serious: Yes (Life-Threatening)
  Sender: FDA-Public Use
  Company Number: IT-ROCHE-573343

PATIENT
  Sex: Male

DRUGS (2)
  1. PEGASYS [Suspect]
     Route: 065
     Dates: start: 20070406, end: 20070629
  2. RIBAVIRIN [Suspect]
     Route: 065
     Dates: start: 20070406, end: 20070629

REACTIONS (1)
  - MENINGITIS PNEUMOCOCCAL [None]
